FAERS Safety Report 11753123 (Version 1)
Quarter: 2015Q4

REPORT INFORMATION
  Report Type: Spontaneous
  Country: None (occurrence: US)
  Receive Date: 20151119
  Receipt Date: 20151119
  Transmission Date: 20160304
  Serious: No
  Sender: FDA-Public Use
  Company Number: US-TEVA-609125ACC

PATIENT
  Sex: Female
  Weight: 80.81 kg

DRUGS (2)
  1. PARAGARD T 380A [Suspect]
     Active Substance: COPPER
     Dates: start: 20151028
  2. PARAGARD T 380A [Suspect]
     Active Substance: COPPER
     Indication: CONTRACEPTION
     Dates: start: 20150820, end: 20151028

REACTIONS (3)
  - Dysmenorrhoea [Unknown]
  - Menorrhagia [Unknown]
  - Device expulsion [Unknown]
